FAERS Safety Report 14375152 (Version 1)
Quarter: 2018Q1

REPORT INFORMATION
  Report Type: Spontaneous
  Country: US (occurrence: US)
  Receive Date: 20180110
  Receipt Date: 20180110
  Transmission Date: 20180509
  Serious: Yes (Other)
  Sender: FDA-Public Use
  Company Number: None

PATIENT
  Age: 54 Year
  Sex: Female

DRUGS (1)
  1. HYDROXYAMPHEMMINE HYDRODROMIDE/TROPICAMIDE OPHTHALMIC SOLUTION, 1%/0.25% GTT [Suspect]
     Active Substance: HYDROXYAMPHETAMINE HYDROBROMIDE\TROPICAMIDE
     Indication: PUPIL DILATION PROCEDURE
     Route: 061
     Dates: start: 20171111

REACTIONS (3)
  - Dermatitis contact [None]
  - Erythema of eyelid [None]
  - Eyelid irritation [None]

NARRATIVE: CASE EVENT DATE: 20171109
